FAERS Safety Report 5948334-3 (Version None)
Quarter: 2008Q4

REPORT INFORMATION
  Report Type: 
  Country: None (occurrence: None)
  Receive Date: 20081110
  Receipt Date: 20081110
  Transmission Date: 20090506
  Serious: Yes (Hospitalization)
  Sender: FDA-Public Use
  Company Number: None

PATIENT
  Age: 31 Year
  Sex: Female
  Weight: 81.6475 kg

DRUGS (2)
  1. CELEXA [Suspect]
     Indication: DEPRESSION
  2. CELEXA [Suspect]
     Indication: PANIC ATTACK

REACTIONS (17)
  - ABASIA [None]
  - COLD SWEAT [None]
  - CONFUSIONAL STATE [None]
  - DEPRESSED MOOD [None]
  - DISORIENTATION [None]
  - DIZZINESS [None]
  - DYSKINESIA [None]
  - FEELING ABNORMAL [None]
  - HEADACHE [None]
  - IMMOBILE [None]
  - MOOD ALTERED [None]
  - NAUSEA [None]
  - PRESYNCOPE [None]
  - REPETITIVE SPEECH [None]
  - SPEECH DISORDER [None]
  - SUICIDAL IDEATION [None]
  - TREMOR [None]
